FAERS Safety Report 6397474-6 (Version None)
Quarter: 2009Q4

REPORT INFORMATION
  Report Type: 
  Country: None (occurrence: None)
  Receive Date: 20091012
  Receipt Date: 20091007
  Transmission Date: 20100525
  Serious: Yes (Hospitalization)
  Sender: FDA-Public Use
  Company Number: US-GENENTECH-291933

PATIENT
  Age: 42 Year
  Sex: Female

DRUGS (9)
  1. TRASTUZUMAB [Suspect]
     Indication: BREAST CANCER
     Dosage: 492 MG, X1
     Route: 042
     Dates: start: 20040121, end: 20040121
  2. TRASTUZUMAB [Suspect]
     Dosage: 246 MG, UNK
     Route: 042
     Dates: start: 20040128, end: 20040331
  3. TAXOTERE [Suspect]
     Indication: BREAST CANCER
     Dosage: 200 MG, UNK
     Route: 042
     Dates: start: 20040122, end: 20040324
  4. ADRIAMYCIN PFS [Suspect]
     Indication: BREAST CANCER
     Dosage: 120 MG, UNK
     Route: 042
     Dates: start: 20031030, end: 20031229
  5. CYCLOPHOSPHAMIDE [Suspect]
     Indication: BREAST CANCER
     Dosage: 1200 MG, UNK
     Route: 042
     Dates: start: 20031030, end: 20031229
  6. ZOFRAN [Concomitant]
     Indication: PREMEDICATION
     Dosage: 32 MG, UNK
     Route: 042
     Dates: start: 20040324, end: 20040324
  7. ZANTAC [Concomitant]
     Indication: PREMEDICATION
     Dosage: 50 MG, UNK
     Route: 042
     Dates: start: 20040324, end: 20040324
  8. BENADRYL [Concomitant]
     Indication: PREMEDICATION
     Dosage: 25 MG, UNK
     Route: 042
     Dates: start: 20040324, end: 20040324
  9. NEULASTA [Concomitant]
     Indication: PROPHYLAXIS
     Dosage: 6 MG, UNK
     Route: 058
     Dates: start: 20040325, end: 20040325

REACTIONS (1)
  - CHOLELITHIASIS [None]
